FAERS Safety Report 16440355 (Version 1)
Quarter: 2019Q2

REPORT INFORMATION
  Report Type: Spontaneous
  Country: US (occurrence: US)
  Receive Date: 20190508
  Receipt Date: 20190508
  Transmission Date: 20190711
  Serious: No
  Sender: FDA-Public Use
  Company Number: None

PATIENT
  Age: 43 Year
  Sex: Female

DRUGS (1)
  1. HUMIRA [Suspect]
     Active Substance: ADALIMUMAB
     Indication: RHEUMATOID ARTHRITIS
     Route: 058
     Dates: start: 20190208

REACTIONS (7)
  - Vomiting [None]
  - Headache [None]
  - Diarrhoea [None]
  - Pain [None]
  - Abdominal pain upper [None]
  - Rheumatoid arthritis [None]
  - Somnolence [None]

NARRATIVE: CASE EVENT DATE: 20190502
